FAERS Safety Report 25962074 (Version 2)
Quarter: 2025Q4

REPORT INFORMATION
  Report Type: Spontaneous
  Country: US (occurrence: US)
  Receive Date: 20251027
  Receipt Date: 20251029
  Transmission Date: 20260117
  Serious: Yes (Other)
  Sender: AUROBINDO
  Company Number: US-MLMSERVICE-20250908-PI639575-00307-1

PATIENT
  Sex: Female

DRUGS (8)
  1. TAMOXIFEN [Suspect]
     Active Substance: TAMOXIFEN
     Indication: Breast cancer metastatic
     Dosage: UNK
     Route: 065
     Dates: start: 2023, end: 2023
  2. TAMOXIFEN [Suspect]
     Active Substance: TAMOXIFEN
     Indication: Metastases to liver
  3. TAMOXIFEN [Suspect]
     Active Substance: TAMOXIFEN
     Indication: Metastases to lung
  4. TAMOXIFEN [Suspect]
     Active Substance: TAMOXIFEN
     Indication: Metastases to bone
  5. LEUPROLIDE [Suspect]
     Active Substance: LEUPROLIDE
     Indication: Breast cancer metastatic
     Dosage: UNK
     Route: 065
     Dates: start: 2023, end: 2023
  6. LEUPROLIDE [Suspect]
     Active Substance: LEUPROLIDE
     Indication: Metastases to liver
  7. LEUPROLIDE [Suspect]
     Active Substance: LEUPROLIDE
     Indication: Metastases to lung
  8. LEUPROLIDE [Suspect]
     Active Substance: LEUPROLIDE
     Indication: Metastases to bone

REACTIONS (2)
  - Drug ineffective [Unknown]
  - Arthralgia [Unknown]

NARRATIVE: CASE EVENT DATE: 20230101
